FAERS Safety Report 18119717 (Version 2)
Quarter: 2020Q3

REPORT INFORMATION
  Report Type: Spontaneous
  Country: IR (occurrence: IR)
  Receive Date: 20200806
  Receipt Date: 20200810
  Transmission Date: 20201103
  Serious: Yes (Other)
  Sender: FDA-Public Use
  Company Number: IR-ABBVIE-20K-080-3509506-00

PATIENT
  Sex: Female

DRUGS (1)
  1. HUMIRA [Suspect]
     Active Substance: ADALIMUMAB
     Indication: CYSTOID MACULAR OEDEMA
     Dosage: INTRAVITREALLY. 0.04 ML (1 MG OF ADALIMUMAB)
     Route: 065

REACTIONS (3)
  - Uveitis [Recovered/Resolved]
  - Off label use [Unknown]
  - Drug ineffective for unapproved indication [Unknown]
